FAERS Safety Report 24451048 (Version 1)
Quarter: 2024Q4

REPORT INFORMATION
  Report Type: Spontaneous
  Country: US (occurrence: US)
  Receive Date: 20241017
  Receipt Date: 20241017
  Transmission Date: 20250114
  Serious: No
  Sender: NOVARTIS
  Company Number: US-002147023-NVSC2024US203182

PATIENT
  Sex: Male

DRUGS (1)
  1. MEKINIST [Suspect]
     Active Substance: TRAMETINIB DIMETHYL SULFOXIDE
     Indication: Neurofibromatosis
     Dosage: 14 ML, QD (G-TUBE) (ORAL SOLUTION)
     Route: 065
     Dates: start: 202408

REACTIONS (2)
  - Rash [Unknown]
  - Product use in unapproved indication [Unknown]
